FAERS Safety Report 15420204 (Version 2)
Quarter: 2018Q4

REPORT INFORMATION
  Report Type: Report from Study
  Country: US (occurrence: US)
  Receive Date: 20180924
  Receipt Date: 20181011
  Transmission Date: 20190204
  Serious: Yes (Hospitalization)
  Sender: FDA-Public Use
  Company Number: US-ASTRAZENECA-2017SE16597

PATIENT
  Age: 22126 Day
  Sex: Female

DRUGS (20)
  1. AZD6244 [Suspect]
     Active Substance: SELUMETINIB
     Indication: NEOPLASM MALIGNANT
     Route: 048
     Dates: start: 20170425, end: 20170501
  2. GEODON [Concomitant]
     Active Substance: ZIPRASIDONE HYDROCHLORIDE\ZIPRASIDONE MESYLATE
     Indication: SCHIZOPHRENIA
     Route: 048
     Dates: start: 200405
  3. MEDI4736 [Suspect]
     Active Substance: DURVALUMAB
     Indication: NEOPLASM MALIGNANT
     Route: 042
     Dates: start: 20170221, end: 20170221
  4. AZD6244 [Suspect]
     Active Substance: SELUMETINIB
     Indication: NEOPLASM MALIGNANT
     Route: 048
     Dates: start: 20180703, end: 20180715
  5. AZD6244 [Suspect]
     Active Substance: SELUMETINIB
     Indication: NEOPLASM MALIGNANT
     Route: 048
     Dates: start: 20170118, end: 20170123
  6. SYNTHROID [Concomitant]
     Active Substance: LEVOTHYROXINE SODIUM
     Indication: HYPOTHYROIDISM
     Route: 048
     Dates: start: 201206
  7. AZD6244 [Suspect]
     Active Substance: SELUMETINIB
     Indication: NEOPLASM MALIGNANT
     Route: 048
     Dates: start: 20170228, end: 20170306
  8. AZD6244 [Suspect]
     Active Substance: SELUMETINIB
     Indication: NEOPLASM MALIGNANT
     Route: 048
     Dates: start: 20170509, end: 20170515
  9. AZD6244 [Suspect]
     Active Substance: SELUMETINIB
     Indication: NEOPLASM MALIGNANT
     Route: 048
     Dates: start: 20170214, end: 20170220
  10. AZD6244 [Suspect]
     Active Substance: SELUMETINIB
     Indication: NEOPLASM MALIGNANT
     Route: 048
     Dates: start: 20170619, end: 20180702
  11. CENTRUM [Concomitant]
     Active Substance: VITAMINS
     Indication: NUTRITIONAL SUPPLEMENTATION
     Route: 048
     Dates: start: 1985
  12. AZD6244 [Suspect]
     Active Substance: SELUMETINIB
     Indication: NEOPLASM MALIGNANT
     Route: 048
     Dates: start: 20170117, end: 20170117
  13. AZD6244 [Suspect]
     Active Substance: SELUMETINIB
     Indication: NEOPLASM MALIGNANT
     Route: 048
     Dates: start: 20170523, end: 20170529
  14. AZD6244 [Suspect]
     Active Substance: SELUMETINIB
     Indication: NEOPLASM MALIGNANT
     Route: 048
     Dates: start: 20170131, end: 20170206
  15. AZD6244 [Suspect]
     Active Substance: SELUMETINIB
     Indication: NEOPLASM MALIGNANT
     Route: 048
     Dates: start: 20170328, end: 20170403
  16. CALTRATE [Concomitant]
     Active Substance: CALCIUM CARBONATE
     Indication: NUTRITIONAL SUPPLEMENTATION
     Route: 048
     Dates: start: 199606
  17. MEDI4736 [Suspect]
     Active Substance: DURVALUMAB
     Indication: NEOPLASM MALIGNANT
     Route: 042
     Dates: start: 20170124, end: 20170124
  18. AZD6244 [Suspect]
     Active Substance: SELUMETINIB
     Indication: NEOPLASM MALIGNANT
     Route: 048
     Dates: start: 20170314, end: 20170320
  19. AZD6244 [Suspect]
     Active Substance: SELUMETINIB
     Indication: NEOPLASM MALIGNANT
     Route: 048
     Dates: start: 20170411, end: 20170417
  20. AZD6244 [Suspect]
     Active Substance: SELUMETINIB
     Indication: NEOPLASM MALIGNANT
     Route: 048
     Dates: start: 20170606, end: 20170612

REACTIONS (2)
  - Pyrexia [Recovered/Resolved]
  - Diarrhoea [Recovered/Resolved]

NARRATIVE: CASE EVENT DATE: 20170206
